FAERS Safety Report 23651551 (Version 1)
Quarter: 2024Q1

REPORT INFORMATION
  Report Type: Spontaneous
  Country: FR (occurrence: FR)
  Receive Date: 20240320
  Receipt Date: 20240320
  Transmission Date: 20240409
  Serious: Yes (Hospitalization, Other)
  Sender: FDA-Public Use
  Company Number: FR-AFSSAPS-SE2024000190

PATIENT
  Age: 84 Year
  Sex: Male
  Weight: 51.6 kg

DRUGS (2)
  1. ERTAPENEM [Suspect]
     Active Substance: ERTAPENEM
     Indication: Proteus infection
     Dosage: 500 MILLIGRAM, ONCE A DAY
     Route: 042
     Dates: start: 20240219, end: 20240226
  2. CEFOTAXIME [Suspect]
     Active Substance: CEFOTAXIME SODIUM
     Indication: Parotitis
     Dosage: 6 GRAM, ONCE A DAY
     Route: 042
     Dates: start: 20240214, end: 20240219

REACTIONS (1)
  - Toxic encephalopathy [Not Recovered/Not Resolved]

NARRATIVE: CASE EVENT DATE: 20240227
